FAERS Safety Report 22255955 (Version 1)
Quarter: 2023Q2

REPORT INFORMATION
  Report Type: Spontaneous
  Country: US (occurrence: None)
  Receive Date: 20230426
  Receipt Date: 20230426
  Transmission Date: 20230722
  Serious: Yes (Disabling, Other)
  Sender: FDA-Public Use
  Company Number: None

PATIENT
  Age: 31 Year
  Sex: Female
  Weight: 56.25 kg

DRUGS (4)
  1. ESCITALOPRAM OXALATE [Suspect]
     Active Substance: ESCITALOPRAM OXALATE
     Indication: Premenstrual dysphoric disorder
     Dosage: FREQUENCY : DAILY;?
     Route: 048
     Dates: start: 20230217, end: 20230218
  2. PROPRANOLOL [Suspect]
     Active Substance: PROPRANOLOL HYDROCHLORIDE
  3. FISH OIL [Concomitant]
     Active Substance: FISH OIL
  4. ESCITALOPRAM OXALATE [Suspect]
     Active Substance: ESCITALOPRAM OXALATE
     Indication: Depression

REACTIONS (9)
  - Panic attack [None]
  - Respiratory rate decreased [None]
  - Urinary tract infection [None]
  - Anxiety [None]
  - Decreased appetite [None]
  - Visual impairment [None]
  - Weight decreased [None]
  - Dizziness [None]
  - Serotonin syndrome [None]

NARRATIVE: CASE EVENT DATE: 20230217
